FAERS Safety Report 16447473 (Version 1)
Quarter: 2019Q2

REPORT INFORMATION
  Report Type: Spontaneous
  Country: DE (occurrence: DE)
  Receive Date: 20190619
  Receipt Date: 20190619
  Transmission Date: 20190711
  Serious: Yes (Hospitalization, Other)
  Sender: FDA-Public Use
  Company Number: PHHY2019DE136680

PATIENT
  Age: 51 Year
  Sex: Male

DRUGS (4)
  1. OXALIPLATIN OMNICARE [Suspect]
     Active Substance: OXALIPLATIN
     Indication: COLON CANCER
     Dosage: 170 MG, UNK
     Route: 042
     Dates: start: 20170410, end: 20170424
  2. OXALIPLATIN HEXAL [Suspect]
     Active Substance: OXALIPLATIN
     Indication: COLON CANCER
     Dosage: 170 MG, UNK
     Route: 065
     Dates: start: 20170508
  3. BEVACIZUMAB. [Concomitant]
     Active Substance: BEVACIZUMAB
     Indication: PRODUCT USED FOR UNKNOWN INDICATION
     Route: 065
  4. FLUOROURACIL. [Concomitant]
     Active Substance: FLUOROURACIL
     Indication: PRODUCT USED FOR UNKNOWN INDICATION
     Route: 065

REACTIONS (2)
  - Cholestasis [Unknown]
  - Bile duct stenosis [Unknown]

NARRATIVE: CASE EVENT DATE: 20181022
